FAERS Safety Report 4475567-8 (Version None)
Quarter: 2004Q4

REPORT INFORMATION
  Report Type: 
  Country: None (occurrence: None)
  Receive Date: 20041014
  Receipt Date: 20041014
  Transmission Date: 20050328
  Serious: No
  Sender: FDA-Public Use
  Company Number: None

PATIENT
  Sex: Male
  Weight: 95.2554 kg

DRUGS (1)
  1. TOPAMAX [Suspect]
     Indication: MIGRAINE
     Dosage: 25 MG 2 PER DAY ORAL
     Route: 048
     Dates: start: 20021206, end: 20021218

REACTIONS (8)
  - EYE DISORDER [None]
  - EYE PAIN [None]
  - EYE REDNESS [None]
  - EYE SWELLING [None]
  - GLAUCOMA [None]
  - HALO VISION [None]
  - MYOPIA [None]
  - VISION BLURRED [None]
